FAERS Safety Report 10032276 (Version 2)
Quarter: 2014Q2

REPORT INFORMATION
  Report Type: Report from Study
  Country: DE (occurrence: DE)
  Receive Date: 20140324
  Receipt Date: 20140507
  Transmission Date: 20141212
  Serious: Yes (Hospitalization)
  Sender: FDA-Public Use
  Company Number: DE-SA-2014SA035031

PATIENT
  Age: 52 Year
  Sex: Female

DRUGS (2)
  1. AUBAGIO [Suspect]
     Indication: MULTIPLE SCLEROSIS
     Route: 048
     Dates: start: 201310, end: 201404
  2. FORMOTEROL [Concomitant]
     Indication: OBSTRUCTIVE AIRWAYS DISORDER
     Route: 055

REACTIONS (1)
  - Chronic obstructive pulmonary disease [Unknown]
